FAERS Safety Report 5210629-9 (Version None)
Quarter: 2007Q1

REPORT INFORMATION
  Report Type: 
  Country: None (occurrence: None)
  Receive Date: 20070117
  Receipt Date: 20061106
  Transmission Date: 20070707
  Serious: Yes (Hospitalization, Other)
  Sender: FDA-Public Use
  Company Number: FR-JNJFOC-20061101075

PATIENT
  Age: 30 Year
  Sex: Male
  Weight: 92 kg

DRUGS (8)
  1. REMICADE [Suspect]
     Indication: CROHN'S DISEASE
     Route: 042
  2. NEBILOX [Concomitant]
     Route: 065
  3. ZOPICLONE [Concomitant]
     Dosage: IN THE EVENING
     Route: 065
  4. UNALPHA [Concomitant]
     Route: 065
  5. NEXIUM [Concomitant]
     Route: 065
  6. DIFFU K [Concomitant]
     Dosage: 2-6 DOSES
     Route: 065
  7. XANAX [Concomitant]
     Route: 065
  8. CETIRIZINE HCL [Concomitant]
     Indication: RHINITIS ALLERGIC
     Route: 065

REACTIONS (5)
  - ANOREXIA [None]
  - ASTHENIA [None]
  - DYSLIPIDAEMIA [None]
  - SYSTEMIC LUPUS ERYTHEMATOSUS [None]
  - URTICARIA CHOLINERGIC [None]
